FAERS Safety Report 7573910-4 (Version None)
Quarter: 2011Q2

REPORT INFORMATION
  Report Type: 
  Country: None (occurrence: None)
  Receive Date: 20110627
  Receipt Date: 20110615
  Transmission Date: 20111010
  Serious: Yes (Death)
  Sender: FDA-Public Use
  Company Number: B0727417A

PATIENT
  Sex: Male
  Weight: 60 kg

DRUGS (5)
  1. THEO-DUR [Concomitant]
     Indication: EMPHYSEMA
     Dosage: 200MG PER DAY
     Route: 048
     Dates: end: 20100717
  2. MUCODYNE [Concomitant]
     Indication: EMPHYSEMA
     Dosage: 750MG PER DAY
     Route: 048
     Dates: end: 20100717
  3. SERETIDE [Suspect]
     Indication: EMPHYSEMA
     Dosage: 500MCG PER DAY
     Route: 055
     Dates: start: 20091121, end: 20100317
  4. SERETIDE [Suspect]
     Dosage: 250MCG PER DAY
     Route: 055
     Dates: start: 20100318, end: 20100717
  5. MEPTIN AIR [Concomitant]
     Indication: EMPHYSEMA
     Route: 055
     Dates: end: 20100717

REACTIONS (1)
  - DEATH [None]
